FAERS Safety Report 18452640 (Version 1)
Quarter: 2020Q4

REPORT INFORMATION
  Report Type: Report from Study
  Country: FR (occurrence: FR)
  Receive Date: 20201102
  Receipt Date: 20201102
  Transmission Date: 20210114
  Serious: Yes (Other)
  Sender: FDA-Public Use
  Company Number: FR-MYLANLABS-2020M1091032

PATIENT

DRUGS (2)
  1. TACROLIMUS. [Suspect]
     Active Substance: TACROLIMUS
     Indication: COLITIS ULCERATIVE
     Dosage: 0.10-0.15 MG/KG IN TWO DIVIDED DOSES AS INDUCTION TREATMENT
     Route: 048
  2. TACROLIMUS. [Suspect]
     Active Substance: TACROLIMUS
     Dosage: LATER WAS SCHEDULED TO RECEIVE TACROLIMUS FOR 12 MONTHS (MAINTENANCE PHASE)
     Route: 048

REACTIONS (1)
  - Drug ineffective [Unknown]
